FAERS Safety Report 8139640-5 (Version None)
Quarter: 2012Q1

REPORT INFORMATION
  Report Type: 
  Country: None (occurrence: None)
  Receive Date: 20120215
  Receipt Date: 20120208
  Transmission Date: 20120608
  Serious: Yes (Death, Other)
  Sender: FDA-Public Use
  Company Number: PHHY2011JP111316

PATIENT
  Sex: Male
  Weight: 41 kg

DRUGS (4)
  1. FAMOTIDINE [Concomitant]
     Dosage: 10 MG, UNK
     Route: 048
     Dates: start: 20111121
  2. EBASTINE [Concomitant]
     Dosage: 10 MG, UNK
     Route: 048
     Dates: start: 20111121
  3. AMLODIPINE BESYLATE/VALSARTAN [Suspect]
     Indication: HYPERTENSION
     Dosage: 1 DF, DAILY
     Route: 048
     Dates: start: 20101008
  4. BASEN [Concomitant]
     Dosage: 0.3 MG, UNK
     Route: 048
     Dates: start: 20111121

REACTIONS (2)
  - ROAD TRAFFIC ACCIDENT [None]
  - BLOOD PRESSURE DIASTOLIC DECREASED [None]
